FAERS Safety Report 8619854-8 (Version None)
Quarter: 2012Q3

REPORT INFORMATION
  Report Type: 
  Country: None (occurrence: None)
  Receive Date: 20120824
  Receipt Date: 20120809
  Transmission Date: 20120928
  Serious: Yes (Other)
  Sender: FDA-Public Use
  Company Number: JP-009507513-1208JPN004873

PATIENT

DRUGS (14)
  1. PEG-INTRON [Suspect]
     Indication: HEPATITIS C
     Dosage: 1.5 MICROGRAM PER KILOGRAM, UNK
     Route: 058
     Dates: start: 20120602
  2. CLARITIN REDITABS [Concomitant]
     Indication: PROPHYLAXIS
     Dosage: FORMULATION: POR
     Route: 048
  3. OMEPRAZOLE [Concomitant]
     Indication: GASTROOESOPHAGEAL REFLUX DISEASE
     Dosage: FORMULATION: POR
     Route: 048
  4. NIFEDIPINE [Concomitant]
     Indication: HYPERTENSION
     Dosage: FORMULATION: POR
     Route: 048
  5. REBETOL [Suspect]
     Indication: HEPATITIS C
     Dosage: STOP INTERVAL: 2 DAY
     Route: 048
     Dates: start: 20120602, end: 20120614
  6. FEROTYM [Concomitant]
     Indication: IRON DEFICIENCY ANAEMIA
     Dosage: FORMULATION: POR
     Route: 048
  7. ALLOPURINOL [Concomitant]
     Indication: HYPERURICAEMIA
     Dosage: FORMULATION: POR
     Route: 048
  8. BENECID [Concomitant]
     Indication: HYPERURICAEMIA
     Dosage: FORMULATION: POR
     Route: 048
  9. TELAVIC [Suspect]
     Indication: HEPATITIS C
     Dosage: 1000 MG, QD
     Route: 048
     Dates: start: 20120602
  10. LIVALO [Concomitant]
     Indication: HYPERLIPIDAEMIA
     Dosage: FORMULATION: POR
     Route: 048
  11. REBETOL [Suspect]
     Dosage: STOP INTERVAL: 2 DAY
     Route: 048
     Dates: start: 20120615
  12. EPADEL S [Concomitant]
     Indication: HYPERLIPIDAEMIA
     Dosage: FORMULATION: POR
  13. MICARDIS [Concomitant]
     Indication: HYPERTENSION
     Dosage: FORMULATION: POR
     Route: 048
  14. ONEALFA [Concomitant]
     Indication: OSTEOPOROSIS
     Dosage: FORMULATION: POR
     Route: 048

REACTIONS (1)
  - ANAEMIA [None]
